FAERS Safety Report 6807191-3 (Version None)
Quarter: 2010Q2

REPORT INFORMATION
  Report Type: 
  Country: None (occurrence: None)
  Receive Date: 20100629
  Receipt Date: 20080815
  Transmission Date: 20101027
  Serious: No
  Sender: FDA-Public Use
  Company Number: US-PFIZER INC-2008068735

PATIENT
  Age: 75 Year
  Sex: Male

DRUGS (1)
  1. CARDURA [Suspect]
     Indication: HYPERTENSION

REACTIONS (2)
  - ERECTILE DYSFUNCTION [None]
  - MALE ORGASMIC DISORDER [None]
